FAERS Safety Report 4519678-7 (Version None)
Quarter: 2004Q4

REPORT INFORMATION
  Report Type: 
  Country: None (occurrence: None)
  Receive Date: 20041206
  Receipt Date: 20041201
  Transmission Date: 20050328
  Serious: Yes (Death, Hospitalization)
  Sender: FDA-Public Use
  Company Number: PHHO2004DE17015

PATIENT
  Age: 70 Year
  Sex: Male

DRUGS (4)
  1. ALLOPURINOL [Concomitant]
     Indication: HYPERURICAEMIA
     Dosage: UNK, QD
     Route: 048
     Dates: start: 19950101
  2. CALCIUM [Concomitant]
     Dosage: 500 MG, QD
     Route: 048
     Dates: start: 20040315
  3. VIGANTOLETTEN ^BAYER^ [Concomitant]
     Dosage: 500 IU, QD
     Route: 048
     Dates: start: 20040315
  4. ZOLEDRONATE [Suspect]
     Indication: MULTIPLE MYELOMA
     Dosage: 4 MG QMO
     Route: 042
     Dates: start: 20040315

REACTIONS (5)
  - BLOOD CREATININE INCREASED [None]
  - CARDIAC FAILURE [None]
  - GENERAL PHYSICAL HEALTH DETERIORATION [None]
  - OEDEMA [None]
  - RENAL FAILURE [None]
